FAERS Safety Report 7642473-7 (Version None)
Quarter: 2011Q3

REPORT INFORMATION
  Report Type: 
  Country: None (occurrence: None)
  Receive Date: 20110728
  Receipt Date: 20110715
  Transmission Date: 20111222
  Serious: Yes (Death)
  Sender: FDA-Public Use
  Company Number: KR-MYLANLABS-2011S1015143

PATIENT
  Age: 10 Year
  Sex: Female

DRUGS (3)
  1. DOXORUBICIN HCL [Suspect]
     Indication: BONE SARCOMA
     Route: 065
  2. CISPLATIN [Suspect]
     Indication: BONE SARCOMA
     Dosage: HIGH-DOSE
     Route: 065
  3. METHOTREXATE [Suspect]
     Indication: BONE SARCOMA
     Dosage: HIGH-DOSE
     Route: 065

REACTIONS (1)
  - WERNICKE'S ENCEPHALOPATHY [None]
